FAERS Safety Report 9471568 (Version 1)
Quarter: 2013Q3

REPORT INFORMATION
  Report Type: Spontaneous
  Country: US (occurrence: None)
  Receive Date: 20130819
  Receipt Date: 20130819
  Transmission Date: 20140515
  Serious: Yes (Hospitalization)
  Sender: FDA-Public Use
  Company Number: SP06920

PATIENT
  Age: 67 Year
  Sex: Male
  Weight: 43.09 kg

DRUGS (1)
  1. XIFAXAN (550 MILLIGRAM, TABLET) [Suspect]
     Indication: BACTERIAL INFECTION
     Dosage: 10 DAY COURSE EVERY MONTH (550 MG, 2 IN 1 D), ORAL
     Route: 048

REACTIONS (2)
  - Chronic obstructive pulmonary disease [None]
  - Renal disorder [None]
